FAERS Safety Report 6874809-9 (Version None)
Quarter: 2010Q3

REPORT INFORMATION
  Report Type: 
  Country: None (occurrence: None)
  Receive Date: 20100723
  Receipt Date: 20100708
  Transmission Date: 20110219
  Serious: Yes (Death)
  Sender: FDA-Public Use
  Company Number: 2008002071

PATIENT
  Age: 80 Year
  Sex: Male
  Weight: 59 kg

DRUGS (9)
  1. ERLOTINIB (ERLOTINIB) (TABLET) (ERLOTINIB) [Suspect]
     Indication: LUNG ADENOCARCINOMA
     Dosage: (150 MG, QD) ORAL
     Route: 048
     Dates: start: 20080428, end: 20080606
  2. CEFTAZIDIME [Suspect]
     Indication: PRODUCT USED FOR UNKNOWN INDICATION
     Dosage: (2 GM,QD), INTRAVENOUS
     Route: 042
     Dates: start: 20080602, end: 20080601
  3. CLINDAMYCIN PHOSPHATE [Suspect]
     Indication: PRODUCT USED FOR UNKNOWN INDICATION
     Dosage: (1200 MG, QD) , INTRAVENOUS
     Route: 042
     Dates: start: 20080602, end: 20080601
  4. AMIKACIN SULFATE [Suspect]
     Indication: PRODUCT USED FOR UNKNOWN INDICATION
     Dosage: (200 MG,QD( , INTRAVENOUS
     Route: 042
     Dates: start: 20080605, end: 20080606
  5. FENTANYL-100 [Concomitant]
  6. LANSOPRAZOLE [Concomitant]
  7. FUROSEMIDE [Concomitant]
  8. PREDNISOLONE [Concomitant]
  9. LOXOPROFEN (LOXOPROFEN) [Concomitant]

REACTIONS (31)
  - ANAEMIA [None]
  - ANORECTAL DISORDER [None]
  - COLITIS [None]
  - COLONIC STENOSIS [None]
  - CYTOKINE STORM [None]
  - DECREASED APPETITE [None]
  - DIFFUSE ALVEOLAR DAMAGE [None]
  - DISEASE PROGRESSION [None]
  - ENTEROCOLITIS [None]
  - GASTRIC HAEMORRHAGE [None]
  - GASTRODUODENAL HAEMORRHAGE [None]
  - INTERSTITIAL LUNG DISEASE [None]
  - LUNG ADENOCARCINOMA [None]
  - METASTASES TO ADRENALS [None]
  - METASTASES TO LIVER [None]
  - METASTASES TO PANCREAS [None]
  - METASTASES TO PITUITARY GLAND [None]
  - METASTASES TO SPINE [None]
  - METASTASIS [None]
  - MUCOSAL INFLAMMATION [None]
  - PLEURAL ADHESION [None]
  - PLEURAL EFFUSION [None]
  - PNEUMONIA [None]
  - PULMONARY ALVEOLAR HAEMORRHAGE [None]
  - PULMONARY EMBOLISM [None]
  - PULMONARY NECROSIS [None]
  - PULMONARY OEDEMA [None]
  - RESPIRATORY FAILURE [None]
  - SMALL INTESTINAL HAEMORRHAGE [None]
  - SPLEEN DISORDER [None]
  - TRAUMATIC LUNG INJURY [None]
